FAERS Safety Report 11598207 (Version 3)
Quarter: 2016Q2

REPORT INFORMATION
  Report Type: Spontaneous
  Country: US (occurrence: US)
  Receive Date: 20151006
  Receipt Date: 20160505
  Transmission Date: 20160815
  Serious: Yes (Other)
  Sender: FDA-Public Use
  Company Number: US-BAYER-2015-433249

PATIENT
  Age: 28 Year
  Sex: Female
  Weight: 93 kg

DRUGS (1)
  1. MIRENA [Suspect]
     Active Substance: LEVONORGESTREL
     Indication: CONTRACEPTION
     Dosage: 20 MCG/24HR, CONT
     Route: 015
     Dates: start: 20100303, end: 20151026

REACTIONS (6)
  - Embedded device [Recovered/Resolved]
  - Device difficult to use [Recovered/Resolved]
  - Device use error [Recovered/Resolved]
  - Device difficult to use [Recovered/Resolved]
  - Procedural dizziness [Recovered/Resolved]
  - Device difficult to use [Recovered/Resolved]

NARRATIVE: CASE EVENT DATE: 20100303
